FAERS Safety Report 12216127 (Version 1)
Quarter: 2016Q1

REPORT INFORMATION
  Report Type: Report from Study
  Country: CA (occurrence: CA)
  Receive Date: 20160329
  Receipt Date: 20160329
  Transmission Date: 20160526
  Serious: Yes (Hospitalization, Other)
  Sender: FDA-Public Use
  Company Number: CA-AMGEN-CANSL2016036987

PATIENT
  Age: 55 Year
  Sex: Female
  Weight: 54.42 kg

DRUGS (1)
  1. PROLIA [Suspect]
     Active Substance: DENOSUMAB
     Indication: OSTEOPOROSIS POSTMENOPAUSAL
     Dosage: 60 MG/ML, UNK
     Route: 058

REACTIONS (5)
  - Renal failure [Unknown]
  - Myocardial infarction [Unknown]
  - Pneumonia [Unknown]
  - Fall [Unknown]
  - Foot fracture [Recovered/Resolved with Sequelae]

NARRATIVE: CASE EVENT DATE: 201501
